FAERS Safety Report 5504067-9 (Version None)
Quarter: 2007Q4

REPORT INFORMATION
  Report Type: 
  Country: None (occurrence: None)
  Receive Date: 20071101
  Receipt Date: 20071030
  Transmission Date: 20080405
  Serious: Yes (Disabling)
  Sender: FDA-Public Use
  Company Number: A0690453A

PATIENT
  Age: 34 Year
  Sex: Female

DRUGS (2)
  1. ALLI [Suspect]
     Dates: start: 20071001, end: 20071013
  2. NUVARING [Concomitant]

REACTIONS (2)
  - DRUG INEFFECTIVE [None]
  - VAGINAL HAEMORRHAGE [None]
